FAERS Safety Report 5856270-6 (Version None)
Quarter: 2008Q3

REPORT INFORMATION
  Report Type: 
  Country: None (occurrence: None)
  Receive Date: 20080825
  Receipt Date: 20080814
  Transmission Date: 20090109
  Serious: Yes (Hospitalization)
  Sender: FDA-Public Use
  Company Number: B0531466A

PATIENT
  Age: 62 Year
  Sex: Male
  Weight: 75.5 kg

DRUGS (10)
  1. ARIXTRA [Suspect]
     Dosage: 2.5MG PER DAY
     Route: 058
     Dates: start: 20080507, end: 20080613
  2. DEROXAT [Concomitant]
     Route: 065
  3. DOLIPRANE [Concomitant]
     Route: 065
  4. TOPALGIC (FRANCE) [Concomitant]
     Route: 065
  5. NEXIUM [Concomitant]
     Route: 065
  6. NEURONTIN [Concomitant]
     Route: 065
  7. TARDYFERON [Concomitant]
     Route: 065
  8. IMOVANE [Concomitant]
     Route: 065
  9. JAMYLENE [Concomitant]
     Route: 065
  10. TRANSIPEG [Concomitant]
     Route: 065

REACTIONS (2)
  - HAEMATURIA [None]
  - INTENTIONAL DRUG MISUSE [None]
